FAERS Safety Report 6536428-3 (Version None)
Quarter: 2010Q1

REPORT INFORMATION
  Report Type: 
  Country: None (occurrence: None)
  Receive Date: 20100113
  Receipt Date: 20100105
  Transmission Date: 20100710
  Serious: Yes (Hospitalization)
  Sender: FDA-Public Use
  Company Number: GXKR2010NL00553

PATIENT
  Sex: Male
  Weight: 71 kg

DRUGS (3)
  1. TOLBUTAMIDE SANDOZ (NGX) [Suspect]
     Indication: TYPE 2 DIABETES MELLITUS
     Dosage: 1 DF, QD
     Route: 048
     Dates: start: 20050101, end: 20091216
  2. METFORMIN HYDROCHLORIDE [Suspect]
     Indication: TYPE 2 DIABETES MELLITUS
     Dosage: 500 MG/DAY
     Route: 048
     Dates: start: 20091209, end: 20091216
  3. SIMVASTATIN [Suspect]
     Indication: HYPERCHOLESTEROLAEMIA
     Dosage: 1 DF, QD
     Route: 065
     Dates: start: 20050101, end: 20091216

REACTIONS (1)
  - HEPATITIS [None]
